FAERS Safety Report 11197643 (Version 1)
Quarter: 2015Q2

REPORT INFORMATION
  Report Type: Spontaneous
  Country: US (occurrence: US)
  Receive Date: 20150617
  Receipt Date: 20150617
  Transmission Date: 20150821
  Serious: No
  Sender: FDA-Public Use
  Company Number: US-GLAXOSMITHKLINE-US2015GSK058931

PATIENT
  Sex: Female
  Weight: 79 kg

DRUGS (4)
  1. MAXALT [Suspect]
     Active Substance: RIZATRIPTAN BENZOATE
     Indication: MIGRAINE
  2. AXERT [Concomitant]
     Active Substance: ALMOTRIPTAN MALATE
  3. TOPAMAX [Concomitant]
     Active Substance: TOPIRAMATE
  4. SUMATRIPTAN. [Suspect]
     Active Substance: SUMATRIPTAN
     Indication: MIGRAINE

REACTIONS (3)
  - Heart rate increased [Recovered/Resolved]
  - Feeling abnormal [Recovered/Resolved]
  - Nonspecific reaction [Recovered/Resolved]
